FAERS Safety Report 6894509-9 (Version None)
Quarter: 2010Q3

REPORT INFORMATION
  Report Type: 
  Country: None (occurrence: None)
  Receive Date: 20100802
  Receipt Date: 20100722
  Transmission Date: 20110219
  Serious: Yes (Hospitalization)
  Sender: FDA-Public Use
  Company Number: SE-ASTRAZENECA-2010SE34219

PATIENT
  Age: 96 Year
  Sex: Female

DRUGS (18)
  1. OMEPRAZOLE [Suspect]
     Route: 048
     Dates: end: 20100120
  2. ENALAPRIL [Suspect]
     Indication: CARDIAC FAILURE
     Route: 048
     Dates: start: 20100101, end: 20100118
  3. PANOCOD EFFERVESCENT [Suspect]
     Route: 048
     Dates: end: 20100120
  4. SPIRONOLAKTON [Suspect]
     Indication: CARDIAC FAILURE
     Route: 048
     Dates: start: 20100101, end: 20100118
  5. METOPROLOL TARTRATE [Concomitant]
  6. ZOPIKLON [Concomitant]
  7. ACETAMINOPHEN [Concomitant]
  8. BEHEPAN [Concomitant]
     Dosage: 1 MG/ML.
  9. PRIMPERAN TAB [Concomitant]
  10. IMPUGAN [Concomitant]
  11. PAPAVERIN RECIP [Concomitant]
     Route: 048
  12. NITROMEX [Concomitant]
  13. XANOR [Concomitant]
  14. OXASCAND [Concomitant]
  15. ISOSORBIDMONONITRAT MYLAN [Concomitant]
  16. TROMBYL [Concomitant]
  17. LAKTULOS [Concomitant]
  18. PREDNISOLON [Concomitant]

REACTIONS (1)
  - RENAL FAILURE [None]
